FAERS Safety Report 4659211-2 (Version None)
Quarter: 2005Q2

REPORT INFORMATION
  Report Type: 
  Country: None (occurrence: None)
  Receive Date: 20050511
  Receipt Date: 20050203
  Transmission Date: 20051028
  Serious: Yes (Other)
  Sender: FDA-Public Use
  Company Number: 2005AC00254

PATIENT
  Age: 20243 Day
  Sex: Female
  Weight: 55 kg

DRUGS (8)
  1. CRESTOR [Suspect]
     Indication: HYPERCHOLESTEROLAEMIA
     Route: 048
     Dates: start: 20041229, end: 20050201
  2. PRAVASTATIN [Concomitant]
  3. SIMVASTATIN [Concomitant]
  4. RAMIPRIL [Concomitant]
  5. CARBASALAAT CE [Concomitant]
  6. NEXIUM [Concomitant]
  7. METOPROLOL TARTRATE [Concomitant]
  8. EZETIMIBE [Concomitant]

REACTIONS (5)
  - ANGIOPATHY [None]
  - CEREBROVASCULAR ACCIDENT [None]
  - CORONARY ARTERY DISEASE [None]
  - INSOMNIA [None]
  - MYALGIA [None]
